FAERS Safety Report 8989290 (Version 2)
Quarter: 2013Q1

REPORT INFORMATION
  Report Type: Spontaneous
  Country: JP (occurrence: JP)
  Receive Date: 20121228
  Receipt Date: 20130117
  Transmission Date: 20140127
  Serious: Yes (Death, Life-Threatening)
  Sender: FDA-Public Use
  Company Number: JP-AMGEN-JPNSP2012083236

PATIENT
  Age: 71 Year
  Sex: Female
  Weight: 36 kg

DRUGS (14)
  1. RANMARK [Suspect]
     Indication: PLASMA CELL MYELOMA
     Dosage: 120 MG, Q6MO
     Route: 058
     Dates: start: 20121207, end: 20121207
  2. RANMARK [Suspect]
     Dosage: UNKNOWN
     Route: 065
     Dates: start: 20121207, end: 20121207
  3. DECADRON                           /00016002/ [Concomitant]
     Dosage: UNK
     Route: 042
     Dates: start: 20121130, end: 20121207
  4. URALYT U                           /01675401/ [Concomitant]
     Route: 048
     Dates: start: 20121121, end: 20121207
  5. EBRANTIL                           /00631801/ [Concomitant]
     Route: 048
     Dates: start: 20121121, end: 20121207
  6. OLMETEC [Concomitant]
     Indication: HYPERTENSION
     Route: 048
     Dates: start: 20121121, end: 20121207
  7. LASIX                              /00032601/ [Concomitant]
     Route: 048
     Dates: start: 20121121, end: 20121207
  8. ADALAT CR [Concomitant]
     Route: 048
     Dates: start: 20121126, end: 20121207
  9. VELCADE [Concomitant]
     Indication: PLASMA CELL MYELOMA
     Route: 042
     Dates: start: 20121130, end: 20121208
  10. DECADRON [Concomitant]
     Indication: PLASMA CELL MYELOMA
     Dosage: UNKNOWN
     Route: 042
     Dates: start: 20121130, end: 201212
  11. URALYT-U [Concomitant]
     Indication: PLASMA CELL MYELOMA
     Route: 048
     Dates: start: 20121121, end: 20121207
  12. EBRANTIL [Concomitant]
     Indication: NEUROGENIC BLADDER
     Route: 048
     Dates: start: 20121121, end: 20121207
  13. LASIX [Concomitant]
     Indication: RENAL FAILURE
     Route: 048
     Dates: start: 20121121, end: 20121207
  14. ADALAT-CR [Concomitant]
     Indication: HYPERTENSION
     Route: 048
     Dates: start: 20121126, end: 20121207

REACTIONS (1)
  - Acute respiratory distress syndrome [Fatal]
